FAERS Safety Report 10042882 (Version 3)
Quarter: 2014Q2

REPORT INFORMATION
  Report Type: Spontaneous
  Country: IT (occurrence: IT)
  Receive Date: 20140328
  Receipt Date: 20140613
  Transmission Date: 20141212
  Serious: Yes (Other)
  Sender: FDA-Public Use
  Company Number: IT-ABBVIE-14K-083-1218008-00

PATIENT
  Age: 78 Year
  Sex: Male

DRUGS (1)
  1. ENANTONE DEPOT [Suspect]
     Indication: PRODUCT USED FOR UNKNOWN INDICATION
     Route: 030

REACTIONS (3)
  - Prostatic specific antigen increased [Unknown]
  - Lung disorder [Unknown]
  - Pleural effusion [Unknown]
